FAERS Safety Report 9216017 (Version 1)
Quarter: 2013Q2

REPORT INFORMATION
  Report Type: Spontaneous
  Country: US (occurrence: US)
  Receive Date: 20130408
  Receipt Date: 20130408
  Transmission Date: 20140414
  Serious: No
  Sender: FDA-Public Use
  Company Number: US-JNJFOC-20130305806

PATIENT
  Age: 33 Year
  Sex: Male
  Weight: 92.99 kg

DRUGS (3)
  1. INVEGA SUSTENNA [Suspect]
     Indication: SCHIZOPHRENIA, PARANOID TYPE
     Route: 030
     Dates: end: 201112
  2. KLONOPIN [Concomitant]
     Indication: AGITATION
     Route: 048
     Dates: start: 201001
  3. KLONOPIN [Concomitant]
     Indication: ANGER
     Route: 048
     Dates: start: 201001

REACTIONS (1)
  - Adverse event [Unknown]
